FAERS Safety Report 19153533 (Version 1)
Quarter: 2021Q2

REPORT INFORMATION
  Report Type: Report from Study
  Country: BR (occurrence: BR)
  Receive Date: 20210419
  Receipt Date: 20210419
  Transmission Date: 20210717
  Serious: Yes (Other)
  Sender: FDA-Public Use
  Company Number: NVSC2021BR081419

PATIENT
  Sex: Female
  Weight: 61 kg

DRUGS (6)
  1. TRAVATAN [Suspect]
     Active Substance: TRAVOPROST
     Indication: GLAUCOMA
     Dosage: 1 DRP, QHS (EACH EYE)
     Route: 047
  2. ALPHAGAN P [Concomitant]
     Active Substance: BRIMONIDINE TARTRATE
     Indication: GLAUCOMA
     Dosage: 7.8 MG, A DROP IN EACH EYE IN MORNING AND AFTERNOON (SOLUTION)
     Route: 047
  3. TIMOLOL. [Concomitant]
     Active Substance: TIMOLOL
     Indication: GLAUCOMA
     Dosage: 0.5 MG, IN THE MORNING AND AFTERRNOON (SOLUTION)
     Route: 047
     Dates: end: 202003
  4. AZOPT [Concomitant]
     Active Substance: BRINZOLAMIDE
     Indication: GLAUCOMA
     Dosage: 5 MG, A DROP IN EACH EYE, IN THE MORNING AND AFTERNOON
     Route: 047
     Dates: end: 202003
  5. AZORGA [Concomitant]
     Active Substance: BRINZOLAMIDE\TIMOLOL MALEATE
     Indication: GLAUCOMA
     Dosage: A DROP IN EACH EYE IN THE MORNING AND AFTERNOON (BRINZOLAMIDE 10 MG PLUS TIMOLOL 6.8 MG)
     Route: 047
     Dates: start: 202102
  6. LUMIGAN [Concomitant]
     Active Substance: BIMATOPROST
     Indication: GLAUCOMA
     Dosage: 0.3 % ONE DROP AT NIGHT (SOLUTION)
     Route: 047

REACTIONS (3)
  - Feeling abnormal [Recovered/Resolved]
  - Arrhythmia [Recovered/Resolved]
  - Tachycardia [Recovered/Resolved]
